FAERS Safety Report 12553680 (Version 10)
Quarter: 2020Q4

REPORT INFORMATION
  Report Type: Spontaneous
  Country: US (occurrence: US)
  Receive Date: 20160713
  Receipt Date: 20201222
  Transmission Date: 20210113
  Serious: Yes (Hospitalization, Other)
  Sender: FDA-Public Use
  Company Number: US-PFIZER INC-2016335930

PATIENT
  Age: 66 Year
  Sex: Female
  Weight: 47 kg

DRUGS (5)
  1. RELPAX [Suspect]
     Active Substance: ELETRIPTAN HYDROBROMIDE
     Indication: MIGRAINE WITH AURA
  2. FELDENE [Suspect]
     Active Substance: PIROXICAM
     Indication: OSTEOARTHRITIS
  3. RELPAX [Suspect]
     Active Substance: ELETRIPTAN HYDROBROMIDE
     Indication: HEADACHE
  4. RELPAX [Suspect]
     Active Substance: ELETRIPTAN HYDROBROMIDE
     Indication: MIGRAINE
     Dosage: 40 MG, AS NEEDED
     Route: 048
     Dates: start: 2008
  5. FELDENE [Suspect]
     Active Substance: PIROXICAM
     Indication: ARTHRITIS
     Dosage: 20 MG, DAILY
     Route: 048
     Dates: start: 2008

REACTIONS (9)
  - Memory impairment [Unknown]
  - Thrombotic stroke [Recovered/Resolved]
  - Migraine [Unknown]
  - Confusional state [Unknown]
  - Tension headache [Unknown]
  - Feeling abnormal [Unknown]
  - Eye disorder [Unknown]
  - Sensitivity to weather change [Unknown]
  - Intentional product misuse [Unknown]

NARRATIVE: CASE EVENT DATE: 20160329
